FAERS Safety Report 16353784 (Version 4)
Quarter: 2020Q1

REPORT INFORMATION
  Report Type: Report from Study
  Country: FR (occurrence: FR)
  Receive Date: 20190524
  Receipt Date: 20200311
  Transmission Date: 20200409
  Serious: Yes (Hospitalization)
  Sender: FDA-Public Use
  Company Number: FR-JNJFOC-20190522736

PATIENT
  Age: 40 Year
  Sex: Male
  Weight: 78.9 kg

DRUGS (5)
  1. USTEKINUMAB [Suspect]
     Active Substance: USTEKINUMAB
     Indication: CROHN^S DISEASE
     Route: 058
  2. TOPALGIC                           /00599202/ [Concomitant]
     Active Substance: TRAMADOL HYDROCHLORIDE
     Indication: JOINT INJURY
     Route: 048
     Dates: start: 20190614, end: 20190616
  3. DOLIPRANE [Concomitant]
     Active Substance: ACETAMINOPHEN
     Route: 048
     Dates: start: 20190619, end: 20190621
  4. DOLIPRANE [Concomitant]
     Active Substance: ACETAMINOPHEN
     Indication: JOINT INJURY
     Route: 048
     Dates: start: 20190614, end: 20190616
  5. NAROPEINE [Concomitant]
     Active Substance: ROPIVACAINE HYDROCHLORIDE
     Indication: JOINT INJURY
     Route: 065
     Dates: start: 20190614, end: 20190614

REACTIONS (1)
  - Campylobacter infection [Recovered/Resolved]

NARRATIVE: CASE EVENT DATE: 20190422
